FAERS Safety Report 19070403 (Version 1)
Quarter: 2021Q1

REPORT INFORMATION
  Report Type: Report from Study
  Country: None (occurrence: CA)
  Receive Date: 20210329
  Receipt Date: 20210329
  Transmission Date: 20210420
  Serious: Yes (Hospitalization, Other)
  Sender: FDA-Public Use
  Company Number: CA-ABBVIE-21K-028-3830238-00

PATIENT
  Age: 63 Year
  Sex: Female

DRUGS (1)
  1. HUMIRA [Suspect]
     Active Substance: ADALIMUMAB
     Indication: CROHN^S DISEASE
     Route: 058
     Dates: start: 20160518

REACTIONS (20)
  - Hospitalisation [Unknown]
  - Neck pain [Not Recovered/Not Resolved]
  - Hospitalisation [Recovered/Resolved]
  - Arthritis [Not Recovered/Not Resolved]
  - Rheumatoid arthritis [Not Recovered/Not Resolved]
  - Incisional hernia [Not Recovered/Not Resolved]
  - Spinal pain [Not Recovered/Not Resolved]
  - Pain [Not Recovered/Not Resolved]
  - Obstruction [Not Recovered/Not Resolved]
  - Ileostomy [Unknown]
  - Malaise [Not Recovered/Not Resolved]
  - Osteoarthritis [Not Recovered/Not Resolved]
  - Nerve compression [Not Recovered/Not Resolved]
  - Gastrointestinal stoma complication [Not Recovered/Not Resolved]
  - Adverse drug reaction [Not Recovered/Not Resolved]
  - Abdominal pain [Not Recovered/Not Resolved]
  - Intestinal mass [Not Recovered/Not Resolved]
  - Blood creatinine increased [Recovered/Resolved]
  - Mass [Not Recovered/Not Resolved]
  - Post-traumatic neck syndrome [Not Recovered/Not Resolved]

NARRATIVE: CASE EVENT DATE: 202009
